FAERS Safety Report 13573270 (Version 1)
Quarter: 2017Q2

REPORT INFORMATION
  Report Type: Spontaneous
  Country: JP (occurrence: JP)
  Receive Date: 20170523
  Receipt Date: 20170523
  Transmission Date: 20170830
  Serious: Yes (Other)
  Sender: FDA-Public Use
  Company Number: JP-PFIZER INC-2017215898

PATIENT
  Age: 9 Decade
  Sex: Female
  Weight: 36 kg

DRUGS (20)
  1. BISOPROLOL [Concomitant]
     Active Substance: BISOPROLOL
  2. ENALAPRIL [Concomitant]
     Active Substance: ENALAPRIL
  3. ALLOPURINOL. [Concomitant]
     Active Substance: ALLOPURINOL
     Route: 048
  4. LYRICA [Suspect]
     Active Substance: PREGABALIN
     Dosage: 50 MG, 2X/DAY (TWO 25-MG CAPSULES TWICE DAILY)
     Route: 048
  5. CLOPIDOGREL [Concomitant]
     Active Substance: CLOPIDOGREL BISULFATE
     Route: 048
  6. ACICLOVIR [Concomitant]
     Active Substance: ACYCLOVIR
     Dosage: 125 MG, 1X/DAY
     Route: 041
  7. CALONAL [Concomitant]
     Active Substance: ACETAMINOPHEN
     Route: 048
  8. RANITIDINE. [Concomitant]
     Active Substance: RANITIDINE
  9. WARFARIN [Concomitant]
     Active Substance: WARFARIN
     Route: 048
  10. ACICLOVIR [Concomitant]
     Active Substance: ACYCLOVIR
     Dosage: 250 MG, 1X/DAY
     Route: 041
  11. FUROSEMIDE. [Concomitant]
     Active Substance: FUROSEMIDE
  12. LYRICA [Suspect]
     Active Substance: PREGABALIN
     Indication: POST HERPETIC NEURALGIA
     Dosage: 25 MG, 2X/DAY
     Route: 048
  13. JANUVIA [Concomitant]
     Active Substance: SITAGLIPTIN PHOSPHATE
  14. ALDACTONE A [Concomitant]
     Active Substance: SPIRONOLACTONE
  15. NICORANDIL [Concomitant]
     Active Substance: NICORANDIL
  16. CETILO [Concomitant]
     Active Substance: SENNA LEAF
  17. GLICLAZIDE [Concomitant]
     Active Substance: GLICLAZIDE
  18. DIART [Concomitant]
     Active Substance: AZOSEMIDE
  19. LYRICA [Suspect]
     Active Substance: PREGABALIN
     Dosage: 75 MG, 2X/DAY
     Route: 048
  20. SENNOSIDE [Concomitant]
     Active Substance: SENNOSIDES

REACTIONS (3)
  - Brain contusion [Unknown]
  - Dizziness [Unknown]
  - Fall [Recovering/Resolving]

NARRATIVE: CASE EVENT DATE: 201702
